FAERS Safety Report 15034936 (Version 1)
Quarter: 2018Q2

REPORT INFORMATION
  Report Type: Spontaneous
  Country: DE (occurrence: DE)
  Receive Date: 20180620
  Receipt Date: 20180620
  Transmission Date: 20180711
  Serious: Yes (Life-Threatening, Hospitalization, Disabling, Other)
  Sender: FDA-Public Use
  Company Number: DE-EMD SERONO-9008718

PATIENT
  Age: 29 Year
  Sex: Male

DRUGS (6)
  1. FENTANYL. [Concomitant]
     Active Substance: FENTANYL
     Indication: PRODUCT USED FOR UNKNOWN INDICATION
  2. DEKRISTOL [Concomitant]
     Active Substance: CHOLECALCIFEROL
     Indication: PRODUCT USED FOR UNKNOWN INDICATION
  3. CLEXANE [Concomitant]
     Active Substance: ENOXAPARIN SODIUM
     Indication: PRODUCT USED FOR UNKNOWN INDICATION
     Route: 058
  4. MAVENCLAD [Suspect]
     Active Substance: CLADRIBINE
     Dosage: SECOND INTAKE PHASE: 7 TABLETS, DISCONTINUED AFTER THE FOURTH DAY OF TREATMENT.
  5. PREGABALINE [Concomitant]
     Active Substance: PREGABALIN
     Indication: PRODUCT USED FOR UNKNOWN INDICATION
     Dosage: 25MG-0-50MG
  6. MAVENCLAD [Suspect]
     Active Substance: CLADRIBINE
     Indication: MULTIPLE SCLEROSIS
     Dosage: FIRST INTAKE PHASE
     Dates: start: 20171207, end: 20171211

REACTIONS (5)
  - Nuclear magnetic resonance imaging abnormal [Recovering/Resolving]
  - Central nervous system lesion [Recovering/Resolving]
  - Multiple sclerosis relapse [Recovering/Resolving]
  - Respiratory disorder [Recovering/Resolving]
  - Dysarthria [Recovering/Resolving]
